FAERS Safety Report 20186596 (Version 3)
Quarter: 2022Q1

REPORT INFORMATION
  Report Type: Spontaneous
  Country: US (occurrence: US)
  Receive Date: 20211215
  Receipt Date: 20220309
  Transmission Date: 20220423
  Serious: Yes (Other)
  Sender: FDA-Public Use
  Company Number: US-NOVARTISPH-NVSC2021US281228

PATIENT
  Sex: Female

DRUGS (1)
  1. XIIDRA [Suspect]
     Active Substance: LIFITEGRAST
     Indication: Dry eye
     Dosage: 1 DRP, BID (BOTH EYES)
     Route: 047

REACTIONS (5)
  - Deafness [Unknown]
  - Eye irritation [Unknown]
  - Dry eye [Unknown]
  - Hypersensitivity [Unknown]
  - Product use complaint [Unknown]
